FAERS Safety Report 5827006-X (Version None)
Quarter: 2008Q3

REPORT INFORMATION
  Report Type: 
  Country: None (occurrence: None)
  Receive Date: 20080730
  Receipt Date: 20080729
  Transmission Date: 20090109
  Serious: Yes (Other)
  Sender: FDA-Public Use
  Company Number: A0739483A

PATIENT
  Sex: Male
  Weight: 128 kg

DRUGS (1)
  1. ALLI [Suspect]
     Indication: WEIGHT DECREASED
     Dates: start: 20080512

REACTIONS (6)
  - DEHYDRATION [None]
  - FALL [None]
  - HYPERPHAGIA [None]
  - JOINT SPRAIN [None]
  - LOSS OF CONSCIOUSNESS [None]
  - WEIGHT INCREASED [None]
